FAERS Safety Report 5262329-7 (Version None)
Quarter: 2007Q1

REPORT INFORMATION
  Report Type: 
  Country: None (occurrence: None)
  Receive Date: 20070308
  Receipt Date: 20070223
  Transmission Date: 20070707
  Serious: Yes (Hospitalization)
  Sender: FDA-Public Use
  Company Number: 237153

PATIENT
  Age: 69 Year
  Sex: Male
  Weight: 70 kg

DRUGS (6)
  1. RITUXAN [Suspect]
     Indication: NON-HODGKIN'S LYMPHOMA
     Dosage: 375 MG, UNK, INTRAVENOUS
     Route: 042
     Dates: start: 20000614
  2. ZEVALIN [Concomitant]
     Indication: NON-HODGKIN'S LYMPHOMA
     Dosage: 191.1 MBQ, UNK, INTRAVENOUS
     Route: 042
     Dates: start: 20020806
  3. CLADRIBINE [Suspect]
     Indication: NON-HODGKIN'S LYMPHOMA
     Dosage: 0.09 MG, UNK, INTRAVENOUS
     Route: 042
     Dates: start: 20040510, end: 20040615
  4. CYCLOPHOSPHAMIDE [Suspect]
     Indication: NON-HODGKIN'S LYMPHOMA
     Dosage: 75 MG, UNK, INTRAVENOUS
     Route: 042
     Dates: start: 20050401, end: 20050912
  5. PREDNISOLONE [Suspect]
     Indication: NON-HODGKIN'S LYMPHOMA
     Dosage: 100 MG, UNK, ORAL
     Route: 048
     Dates: start: 20050401, end: 20050912
  6. PROCARBAZINE (PROCARBAZINE HYDROCHLORIDE) [Suspect]
     Indication: NON-HODGKIN'S LYMPHOMA
     Dosage: UNK, UNK, ORAL
     Route: 048
     Dates: start: 20050401, end: 20050912

REACTIONS (3)
  - GASTRIC CANCER [None]
  - LYMPHADENOPATHY [None]
  - NO THERAPEUTIC RESPONSE [None]
